FAERS Safety Report 16820339 (Version 1)
Quarter: 2019Q3

REPORT INFORMATION
  Report Type: Spontaneous
  Country: FR (occurrence: FR)
  Receive Date: 20190918
  Receipt Date: 20190918
  Transmission Date: 20191005
  Serious: Yes (Hospitalization, Other)
  Sender: FDA-Public Use
  Company Number: FR-AUROBINDO-AUR-APL-2019-060391

PATIENT
  Age: 29 Year
  Sex: Male
  Weight: 97 kg

DRUGS (3)
  1. COLCHICINE. [Suspect]
     Active Substance: COLCHICINE
     Indication: GOUT
     Dosage: 0.33 MILLIGRAM/KILOGRAM
     Route: 048
  2. PARACETAMOL [Suspect]
     Active Substance: ACETAMINOPHEN
     Indication: GOUT
     Dosage: 20 GRAM
     Route: 048
  3. ALCOHOL. [Suspect]
     Active Substance: ALCOHOL
     Indication: PRODUCT USED FOR UNKNOWN INDICATION
     Dosage: 554 GRAM (EQUIVALENT TO TWO BOTTLES OF SPIRITS AND A BOTTLE OF WINE)
     Route: 048

REACTIONS (3)
  - Intentional overdose [Recovered/Resolved]
  - Diarrhoea [Recovered/Resolved]
  - Poisoning deliberate [Recovered/Resolved]
